FAERS Safety Report 24586622 (Version 1)
Quarter: 2024Q4

REPORT INFORMATION
  Report Type: Report from Study
  Country: US (occurrence: US)
  Receive Date: 20241107
  Receipt Date: 20241107
  Transmission Date: 20250114
  Serious: Yes (Other)
  Sender: UCB
  Company Number: US-UCBSA-2024056568

PATIENT
  Age: 70 Year
  Sex: Female

DRUGS (1)
  1. ROTIGOTINE [Suspect]
     Active Substance: ROTIGOTINE
     Indication: Restless legs syndrome
     Dosage: 6 MILLIGRAM, ONCE DAILY (QD)

REACTIONS (5)
  - Multiple sclerosis [Not Recovered/Not Resolved]
  - Fall [Not Recovered/Not Resolved]
  - Skin laceration [Not Recovered/Not Resolved]
  - Pain [Not Recovered/Not Resolved]
  - Hospice care [Not Recovered/Not Resolved]

NARRATIVE: CASE EVENT DATE: 20240418
